FAERS Safety Report 25802214 (Version 1)
Quarter: 2025Q3

REPORT INFORMATION
  Report Type: Spontaneous
  Country: US (occurrence: None)
  Receive Date: 20250912
  Receipt Date: 20250912
  Transmission Date: 20251020
  Serious: Yes (Death)
  Sender: FDA-CTU
  Company Number: None

PATIENT
  Sex: Male

DRUGS (1)
  1. MYCOPHENOLIC ACID [Suspect]
     Active Substance: MYCOPHENOLIC ACID
     Indication: Chronic kidney disease
     Dosage: TAKE 1 TABLET (180MG) BY MOUTH TWO TIMES DAILY.
     Route: 048
     Dates: start: 20201111

REACTIONS (1)
  - Death [None]
